FAERS Safety Report 4533300-5 (Version None)
Quarter: 2004Q4

REPORT INFORMATION
  Report Type: 
  Country: None (occurrence: None)
  Receive Date: 20041221
  Receipt Date: 20040804
  Transmission Date: 20050328
  Serious: Yes (Hospitalization)
  Sender: FDA-Public Use
  Company Number: PHBS2004JP10422

PATIENT
  Age: 70 Year
  Sex: Male
  Weight: 70 kg

DRUGS (6)
  1. LOCHOL [Suspect]
     Indication: HYPERCHOLESTEROLAEMIA
     Dosage: 20 MG/DAY
     Route: 048
     Dates: start: 19981028, end: 20040722
  2. SERMION [Concomitant]
     Dosage: 10 MG
     Route: 048
     Dates: start: 19981028, end: 20040722
  3. MICARDIS [Concomitant]
     Dosage: 40 MG
     Route: 048
     Dates: start: 20040223, end: 20040722
  4. CEPHADOL [Concomitant]
     Dosage: 100 MG
     Route: 048
     Dates: start: 20030410, end: 20040722
  5. NICHISTATE [Concomitant]
     Indication: PLATELET AGGREGATION INHIBITION
     Dosage: 100 MG
     Route: 048
     Dates: start: 20040126, end: 20040722
  6. AMLODIPINE [Concomitant]
     Dosage: 5 MG
     Route: 048
     Dates: start: 19981028

REACTIONS (14)
  - ABDOMINAL PAIN [None]
  - ALANINE AMINOTRANSFERASE INCREASED [None]
  - ASPARTATE AMINOTRANSFERASE INCREASED [None]
  - BLOOD CREATINE PHOSPHOKINASE INCREASED [None]
  - BLOOD CREATININE INCREASED [None]
  - BLOOD LACTATE DEHYDROGENASE INCREASED [None]
  - BLOOD UREA INCREASED [None]
  - C-REACTIVE PROTEIN INCREASED [None]
  - DIARRHOEA [None]
  - GAMMA-GLUTAMYLTRANSFERASE INCREASED [None]
  - ILEUS PARALYTIC [None]
  - RENAL FAILURE ACUTE [None]
  - RHABDOMYOLYSIS [None]
  - VOMITING [None]
